FAERS Safety Report 6888039-8 (Version None)
Quarter: 2010Q3

REPORT INFORMATION
  Report Type: 
  Country: None (occurrence: None)
  Receive Date: 20100730
  Receipt Date: 20100723
  Transmission Date: 20110219
  Serious: Yes (Hospitalization)
  Sender: FDA-Public Use
  Company Number: B0667614A

PATIENT
  Sex: Female

DRUGS (6)
  1. ZEFFIX [Suspect]
     Dosage: 100MG PER DAY
     Route: 048
     Dates: start: 20100501, end: 20100710
  2. AMIODARONE HCL [Concomitant]
  3. AMLODIPINE [Concomitant]
  4. OMEPRAZOLE [Concomitant]
  5. REPAGLINIDE [Concomitant]
  6. TELMISARTAN [Concomitant]

REACTIONS (1)
  - LEUKOPENIA [None]
